FAERS Safety Report 7724742-5 (Version None)
Quarter: 2011Q3

REPORT INFORMATION
  Report Type: 
  Country: None (occurrence: None)
  Receive Date: 20110901
  Receipt Date: 20110826
  Transmission Date: 20111222
  Serious: Yes (Other)
  Sender: FDA-Public Use
  Company Number: CA-PFIZER INC-2011189664

PATIENT
  Age: 84 Year
  Sex: Male

DRUGS (6)
  1. XALATAN [Suspect]
     Indication: INTRAOCULAR PRESSURE TEST
  2. BACLOFEN [Concomitant]
     Indication: MUSCLE RELAXANT THERAPY
     Dosage: 10 MG, 1X/DAY
  3. XALATAN [Suspect]
     Indication: GLAUCOMA
     Dosage: ONE DROP IN BOTH EYES ONCE A DAY AT BEDTIME
     Route: 047
  4. AMLODIPINE [Concomitant]
     Indication: BLOOD PRESSURE
     Dosage: 10 MG, 1X/DAY
  5. DOXYCYCLINE [Concomitant]
     Indication: EYE INFECTION FUNGAL
     Dosage: 50 MG, 1X/DAY SOMETIMES 2X/DAY
  6. TOBRAMYCIN [Concomitant]
     Indication: ANTIBIOTIC THERAPY
     Dosage: UNK

REACTIONS (2)
  - CORNEAL TRANSPLANT [None]
  - CATARACT OPERATION [None]
